FAERS Safety Report 16971265 (Version 1)
Quarter: 2019Q4

REPORT INFORMATION
  Report Type: Spontaneous
  Country: US (occurrence: US)
  Receive Date: 20190912
  Receipt Date: 20190912
  Transmission Date: 20200122
  Serious: Yes (Other)
  Sender: FDA-Public Use
  Company Number: None

PATIENT
  Age: 83 Year
  Sex: Female
  Weight: 56.7 kg

DRUGS (8)
  1. COREG [Concomitant]
     Active Substance: CARVEDILOL
  2. PANOPRAZOLE [Concomitant]
  3. BETA CARRTIN [Concomitant]
  4. VIT D [Concomitant]
     Active Substance: VITAMIN D NOS
  5. ASPRIN [Concomitant]
     Active Substance: ASPIRIN
  6. FOLIC ACID. [Concomitant]
     Active Substance: FOLIC ACID
  7. PROLIA [Suspect]
     Active Substance: DENOSUMAB
     Indication: OSTEOPOROSIS
     Dosage: ?          QUANTITY:1 DF DOSAGE FORM;OTHER FREQUENCY:EVERY 6 MON;?
     Dates: end: 201812
  8. VIT B12 INJECTION [Concomitant]

REACTIONS (9)
  - Pruritus [None]
  - Back pain [None]
  - Constipation [None]
  - Anaemia [None]
  - Weight decreased [None]
  - Chills [None]
  - Night sweats [None]
  - Dizziness [None]
  - Diarrhoea [None]

NARRATIVE: CASE EVENT DATE: 20190425
